FAERS Safety Report 8164594-5 (Version None)
Quarter: 2012Q1

REPORT INFORMATION
  Report Type: 
  Country: None (occurrence: None)
  Receive Date: 20120227
  Receipt Date: 20120216
  Transmission Date: 20120608
  Serious: Yes (Other)
  Sender: FDA-Public Use
  Company Number: BR-AMGEN-BRASP2012010976

PATIENT
  Age: 66 Year
  Sex: Female
  Weight: 97 kg

DRUGS (11)
  1. PREDNISONE [Concomitant]
     Dosage: 5 MG, 2X/DAY
  2. CALCIUM [Concomitant]
     Dosage: 35 MG, WEEKLY
  3. OMEPRAZOLE [Concomitant]
     Dosage: 20 MG, 1X/DAY
  4. SIMVASTATIN [Concomitant]
     Dosage: 40 MG, 1X/DAY
  5. FOLIC ACID [Concomitant]
     Dosage: 5 MG, WEEKLY
  6. ACETAMINOPHEN [Concomitant]
     Dosage: 750 MG, 3X/DAY
  7. METHOTREXATE [Concomitant]
     Dosage: 0.4 MG, WEEKLY
  8. ENBREL [Suspect]
     Indication: RHEUMATOID ARTHRITIS
     Dosage: 50 MG, ONCE WEEKLY
     Route: 058
     Dates: start: 20100909
  9. GLUCOSAMINE SULFATE [Concomitant]
     Dosage: 1.5 MG, 1X/DAY
  10. PHENYTOIN [Concomitant]
     Dosage: 100 MG, 3X/DAY
  11. NIMESULIDE [Concomitant]
     Dosage: 100 MG, 1X/DAY

REACTIONS (2)
  - INFLAMMATION [None]
  - CEREBROVASCULAR ACCIDENT [None]
